FAERS Safety Report 25234196 (Version 1)
Quarter: 2025Q2

REPORT INFORMATION
  Report Type: Spontaneous
  Country: JP (occurrence: JP)
  Receive Date: 20250424
  Receipt Date: 20250424
  Transmission Date: 20250717
  Serious: Yes (Hospitalization, Other)
  Sender: GLAXOSMITHKLINE
  Company Number: JP-GSKNCCC-Case-02316483_AE-97076

PATIENT

DRUGS (1)
  1. SERETIDE [Suspect]
     Active Substance: FLUTICASONE PROPIONATE\SALMETEROL XINAFOATE
     Dosage: BID, TWO INHALATIONS/DOSE

REACTIONS (5)
  - Pneumonia [Unknown]
  - Asthma [Unknown]
  - Dysgeusia [Unknown]
  - Overdose [Unknown]
  - Off label use [Unknown]
